FAERS Safety Report 6717025-3 (Version None)
Quarter: 2010Q2

REPORT INFORMATION
  Report Type: 
  Country: None (occurrence: None)
  Receive Date: 20100510
  Receipt Date: 20100503
  Transmission Date: 20101027
  Serious: No
  Sender: FDA-Public Use
  Company Number: US-JNJFOC-20100500955

PATIENT
  Sex: Female
  Weight: 86.18 kg

DRUGS (4)
  1. FENTANYL CITRATE [Suspect]
     Indication: BONE PAIN
     Route: 062
  2. FENTANYL CITRATE [Suspect]
     Route: 062
  3. WELLBUTRIN [Concomitant]
     Indication: BIPOLAR DISORDER
     Route: 048
  4. LAMICTAL [Concomitant]
     Indication: BIPOLAR DISORDER
     Route: 048

REACTIONS (3)
  - DRUG INEFFECTIVE [None]
  - FEELING OF RELAXATION [None]
  - INAPPROPRIATE SCHEDULE OF DRUG ADMINISTRATION [None]
